FAERS Safety Report 8048897-0 (Version None)
Quarter: 2012Q1

REPORT INFORMATION
  Report Type: 
  Country: None (occurrence: None)
  Receive Date: 20120117
  Receipt Date: 20120105
  Transmission Date: 20120608
  Serious: Yes (Hospitalization, Other)
  Sender: FDA-Public Use
  Company Number: US-ELI_LILLY_AND_COMPANY-US201010000818

PATIENT
  Sex: Female
  Weight: 46.712 kg

DRUGS (19)
  1. FORTEO [Suspect]
     Dosage: 20 UG, QD
     Route: 065
  2. VENTOLIN [Concomitant]
  3. ASPIRIN [Concomitant]
  4. FORTEO [Suspect]
     Dosage: 20 UG, QD
     Route: 065
  5. PREDNISONE [Concomitant]
  6. PLAVIX [Concomitant]
  7. ANTIHYPERTENSIVES [Concomitant]
     Indication: HYPERTENSION
  8. FORTEO [Suspect]
     Dosage: 20 UG, QD
     Route: 065
  9. ADVAIR DISKUS 100/50 [Concomitant]
  10. ATROVENT [Concomitant]
  11. FORTEO [Suspect]
     Dosage: 20 UG, QD
     Route: 065
  12. OXYGEN [Concomitant]
  13. FORTEO [Suspect]
     Dosage: 20 U, QD
     Route: 065
  14. FORTEO [Suspect]
     Dosage: 20 UG, QD
     Route: 065
  15. FORTEO [Suspect]
     Dosage: 20 UG, QD
     Route: 065
  16. FORTEO [Suspect]
     Dosage: 20 UG, QD
     Route: 065
  17. CALCIUM [Concomitant]
  18. FORTEO [Suspect]
     Indication: OSTEOPOROSIS
     Dosage: 20 UG, QD
     Route: 065
     Dates: start: 20091201
  19. DIURETICS [Concomitant]

REACTIONS (16)
  - MYOCARDIAL INFARCTION [None]
  - THERMAL BURN [None]
  - DYSPNOEA [None]
  - BACTERIAL INFECTION [None]
  - STENT PLACEMENT [None]
  - PERIORBITAL HAEMATOMA [None]
  - BLOOD CALCIUM INCREASED [None]
  - CARDIAC OPERATION [None]
  - STRESS [None]
  - CHEST DISCOMFORT [None]
  - FEELING ABNORMAL [None]
  - LUNG INFECTION [None]
  - INJURY [None]
  - MALAISE [None]
  - HEAD INJURY [None]
  - FALL [None]
